FAERS Safety Report 18260398 (Version 2)
Quarter: 2020Q4

REPORT INFORMATION
  Report Type: Spontaneous
  Country: PE (occurrence: PE)
  Receive Date: 20200914
  Receipt Date: 20201125
  Transmission Date: 20210113
  Serious: Yes (Other)
  Sender: FDA-Public Use
  Company Number: PE-SUN PHARMACEUTICAL INDUSTRIES LTD-2020RR-260883

PATIENT
  Age: 37 Year
  Sex: Male

DRUGS (2)
  1. GEMCITABINE MEDIFARMA [Suspect]
     Active Substance: GEMCITABINE
     Indication: LEIOMYOSARCOMA METASTATIC
     Dosage: DAY 1 AND 8 EVERY 21 DAYS
     Route: 065
  2. DOCETAXEL GP PHARMA [Suspect]
     Active Substance: DOCETAXEL
     Indication: LEIOMYOSARCOMA METASTATIC
     Dosage: DAY 8
     Route: 065

REACTIONS (2)
  - Therapeutic product effect incomplete [Unknown]
  - Haematotoxicity [Recovering/Resolving]
